FAERS Safety Report 4767715-7 (Version None)
Quarter: 2005Q3

REPORT INFORMATION
  Report Type: 
  Country: None (occurrence: None)
  Receive Date: 20050912
  Receipt Date: 20050829
  Transmission Date: 20060218
  Serious: Yes (Hospitalization)
  Sender: FDA-Public Use
  Company Number: 6016953F

PATIENT
  Age: 41 Year
  Sex: Male

DRUGS (16)
  1. NIASPAN [Suspect]
     Dosage: 325 MG QHS PO
     Route: 048
     Dates: start: 20050818, end: 20050821
  2. TRAMADOL [Concomitant]
  3. ASPIRIN [Concomitant]
  4. QUININE SULFATE [Concomitant]
  5. RAMIPRIL [Concomitant]
  6. CEREBREX [Concomitant]
  7. DOMPERIDONE [Concomitant]
  8. AMITRIPTYLINE HCL [Concomitant]
  9. SIMVASTATIN [Concomitant]
  10. BENDROFLUMETHIAZIDE [Concomitant]
  11. OMEPRAZOLE [Concomitant]
  12. DIAZEPAM [Concomitant]
  13. EZETIMIBE [Concomitant]
  14. BUPRENOPHINE [Concomitant]
  15. INSULIN ASPART [Concomitant]
  16. INSULIN GLARGINE [Concomitant]

REACTIONS (4)
  - BLISTER [None]
  - ERYTHEMA [None]
  - MUSCLE SPASMS [None]
  - PRURITUS GENERALISED [None]
